FAERS Safety Report 11390198 (Version 1)
Quarter: 2015Q3

REPORT INFORMATION
  Report Type: Spontaneous
  Country: US (occurrence: None)
  Receive Date: 20150814
  Receipt Date: 20150814
  Transmission Date: 20151125
  Serious: Yes (Hospitalization)
  Sender: FDA-Public Use
  Company Number: None

PATIENT
  Age: 64 Year
  Sex: Female
  Weight: 68.2 kg

DRUGS (7)
  1. NIFEDIPINE. [Concomitant]
     Active Substance: NIFEDIPINE
  2. RIBAVIRIN 1000 MG [Suspect]
     Active Substance: RIBAVIRIN
     Indication: HEPATITIS C
     Route: 048
     Dates: start: 20150501
  3. PREMARIN [Concomitant]
     Active Substance: ESTROGENS, CONJUGATED
  4. LASIX [Concomitant]
     Active Substance: FUROSEMIDE
  5. HARVONI [Suspect]
     Active Substance: LEDIPASVIR\SOFOSBUVIR
     Indication: HEPATITIS C
     Dosage: 90-400 MG
     Route: 048
     Dates: start: 20150501, end: 20150610
  6. ALBUTEROL. [Concomitant]
     Active Substance: ALBUTEROL
  7. BACTRIM [Concomitant]
     Active Substance: SULFAMETHOXAZOLE\TRIMETHOPRIM

REACTIONS (13)
  - Lethargy [None]
  - Insomnia [None]
  - Asterixis [None]
  - Decreased appetite [None]
  - Fatigue [None]
  - Pancytopenia [None]
  - Palpitations [None]
  - Hypersomnia [None]
  - Fall [None]
  - Malaise [None]
  - Abdominal pain upper [None]
  - Faeces discoloured [None]
  - Confusional state [None]

NARRATIVE: CASE EVENT DATE: 20150610
